FAERS Safety Report 10902059 (Version 1)
Quarter: 2015Q1

REPORT INFORMATION
  Report Type: Report from Study
  Country: US (occurrence: US)
  Receive Date: 20150310
  Receipt Date: 20150310
  Transmission Date: 20150721
  Serious: Yes (Hospitalization, Other)
  Sender: FDA-Public Use
  Company Number: US-ABBVIE-15K-163-1354303-00

PATIENT
  Age: 65 Year
  Sex: Female
  Weight: 61.74 kg

DRUGS (7)
  1. PREDNISONE. [Concomitant]
     Active Substance: PREDNISONE
     Indication: PRODUCT USED FOR UNKNOWN INDICATION
  2. XIFAXAN [Concomitant]
     Active Substance: RIFAXIMIN
     Indication: PRODUCT USED FOR UNKNOWN INDICATION
  3. COLESTIPOL [Concomitant]
     Active Substance: COLESTIPOL
     Indication: PRODUCT USED FOR UNKNOWN INDICATION
  4. PRADAXA [Concomitant]
     Active Substance: DABIGATRAN ETEXILATE MESYLATE
     Indication: PRODUCT USED FOR UNKNOWN INDICATION
  5. SUCRALFATE. [Concomitant]
     Active Substance: SUCRALFATE
     Indication: PRODUCT USED FOR UNKNOWN INDICATION
  6. HUMIRA [Suspect]
     Active Substance: ADALIMUMAB
     Indication: CROHN^S DISEASE
     Route: 058
     Dates: end: 2005
  7. XIFAXAN [Concomitant]
     Active Substance: RIFAXIMIN
     Indication: PRODUCT USED FOR UNKNOWN INDICATION

REACTIONS (13)
  - Incision site infection [Not Recovered/Not Resolved]
  - Renal atrophy [Unknown]
  - Large intestine perforation [Not Recovered/Not Resolved]
  - Fistula discharge [Unknown]
  - Diverticulum intestinal [Unknown]
  - Abdominal pain upper [Not Recovered/Not Resolved]
  - Staphylococcal infection [Unknown]
  - Abdominal pain [Recovered/Resolved]
  - Abdominal adhesions [Unknown]
  - Volvulus [Unknown]
  - Peritonitis [Unknown]
  - Enterocutaneous fistula [Unknown]
  - Adrenal mass [Unknown]

NARRATIVE: CASE EVENT DATE: 201403
